FAERS Safety Report 5014060-0 (Version None)
Quarter: 2006Q2

REPORT INFORMATION
  Report Type: 
  Country: None (occurrence: None)
  Receive Date: 20060525
  Receipt Date: 20060504
  Transmission Date: 20061013
  Serious: Yes (Other)
  Sender: FDA-Public Use
  Company Number: CA200605001462

PATIENT
  Age: 82 Year
  Sex: Female

DRUGS (10)
  1. FORTEO [Suspect]
     Indication: OSTEOPOROSIS
     Dosage: 20 UG DAILY (1/D)
     Dates: start: 20060315, end: 20060424
  2. PAROXETINE HCL [Concomitant]
  3. AMILORIDE [Concomitant]
  4. GLUCOSAMINE [Concomitant]
  5. MULTIVITAMINS (ASCORBIC ACID, ERGOCALCIFEROL) [Concomitant]
  6. CALCIUM GLUCONATE [Concomitant]
  7. VITAMIN D [Concomitant]
  8. VITAMIN E [Concomitant]
  9. ASPIRIN [Concomitant]
  10. FORTEO [Concomitant]

REACTIONS (2)
  - CEREBROVASCULAR ACCIDENT [None]
  - DIZZINESS [None]
